FAERS Safety Report 18241666 (Version 1)
Quarter: 2020Q3

REPORT INFORMATION
  Report Type: Spontaneous
  Country: US (occurrence: US)
  Receive Date: 20200905
  Receipt Date: 20200905
  Transmission Date: 20201103
  Serious: No
  Sender: FDA-Public Use
  Company Number: None

PATIENT
  Age: 81 Year
  Sex: Male

DRUGS (1)
  1. REVLIMID [Suspect]
     Active Substance: LENALIDOMIDE
     Indication: PLASMA CELL MYELOMA
     Route: 048
     Dates: start: 20150805, end: 20160615

REACTIONS (4)
  - Confusional state [None]
  - Therapy cessation [None]
  - Cognitive disorder [None]
  - Amnesia [None]

NARRATIVE: CASE EVENT DATE: 20160615
